FAERS Safety Report 9352054 (Version 2)
Quarter: 2013Q3

REPORT INFORMATION
  Report Type: Spontaneous
  Country: US (occurrence: US)
  Receive Date: 20130617
  Receipt Date: 20130819
  Transmission Date: 20140515
  Serious: Yes (Other)
  Sender: FDA-Public Use
  Company Number: US-UCBSA-088382

PATIENT
  Sex: Male

DRUGS (4)
  1. CIMZIA [Suspect]
     Indication: RHEUMATOID ARTHRITIS
     Dates: start: 20101014, end: 201103
  2. PENNSAID [Concomitant]
     Dosage: 10 DROPS
  3. MOBIC [Concomitant]
     Dosage: 7.5 MG
  4. PREDNISONE [Concomitant]

REACTIONS (2)
  - Mycobacterium marinum infection [Recovered/Resolved]
  - Laceration [Recovered/Resolved]
